FAERS Safety Report 8569956-X (Version None)
Quarter: 2012Q3

REPORT INFORMATION
  Report Type: 
  Country: None (occurrence: None)
  Receive Date: 20120803
  Receipt Date: 20120621
  Transmission Date: 20120928
  Serious: No
  Sender: FDA-Public Use
  Company Number: US-ABBOTT-12P-163-0948751-00

PATIENT
  Sex: Male
  Weight: 96.248 kg

DRUGS (4)
  1. LOVAZA [Concomitant]
     Indication: PRODUCT USED FOR UNKNOWN INDICATION
  2. NIASPAN [Suspect]
     Indication: PRODUCT USED FOR UNKNOWN INDICATION
     Dosage: 500MG X 2 TABLETS
     Dates: start: 20120613
  3. MEGA-MEN MVI [Concomitant]
     Indication: PRODUCT USED FOR UNKNOWN INDICATION
  4. VITAREX [Concomitant]
     Indication: SUPPLEMENTATION THERAPY

REACTIONS (5)
  - HYPOTENSION [None]
  - HEADACHE [None]
  - WEIGHT DECREASED [None]
  - FLUSHING [None]
  - TESTICULAR PAIN [None]
